FAERS Safety Report 6173806-9 (Version None)
Quarter: 2009Q2

REPORT INFORMATION
  Report Type: 
  Country: None (occurrence: None)
  Receive Date: 20090430
  Receipt Date: 20090422
  Transmission Date: 20091009
  Serious: Yes (Death)
  Sender: FDA-Public Use
  Company Number: SE-BAYER-200918985GPV

PATIENT
  Age: 70 Year
  Sex: Female

DRUGS (7)
  1. CIPROFLOXACIN HCL [Suspect]
     Indication: APPENDICITIS
     Route: 048
     Dates: start: 20090218, end: 20090226
  2. TAZOCIN [Suspect]
     Indication: APPENDICITIS
     Dosage: UNIT DOSE: 4 G
     Route: 042
     Dates: start: 20090227, end: 20090301
  3. TAZOCIN [Suspect]
     Route: 065
     Dates: start: 20090127, end: 20090205
  4. METRONIDAZOL ACTAVIS [Suspect]
     Indication: DRUG USE FOR UNKNOWN INDICATION
     Route: 048
     Dates: start: 20090302, end: 20090304
  5. METRONIDAZOL ACTAVIS [Suspect]
     Route: 048
     Dates: start: 20090218, end: 20090226
  6. CEFAMOX [Suspect]
     Indication: DRUG USE FOR UNKNOWN INDICATION
     Route: 048
     Dates: start: 20090302, end: 20090305
  7. FLAGYL [Concomitant]
     Indication: ABDOMINAL ABSCESS
     Route: 065
     Dates: start: 20090128, end: 20090128

REACTIONS (5)
  - BLOOD BILIRUBIN INCREASED [None]
  - HEPATIC ENZYME INCREASED [None]
  - HEPATIC FAILURE [None]
  - JAUNDICE [None]
  - MIXED LIVER INJURY [None]
